FAERS Safety Report 6050884-9 (Version None)
Quarter: 2009Q1

REPORT INFORMATION
  Report Type: 
  Country: None (occurrence: None)
  Receive Date: 20090126
  Receipt Date: 20080509
  Transmission Date: 20090719
  Serious: No
  Sender: FDA-Public Use
  Company Number: US-TYCO HEALTHCARE/MALLINCKRODT-T200800817

PATIENT

DRUGS (11)
  1. OPTIRAY 300 [Suspect]
     Indication: COMPUTERISED TOMOGRAM
     Dosage: 115 ML (CC), SINGLE
     Route: 042
     Dates: start: 20080507, end: 20080507
  2. TOPROL-XL [Concomitant]
  3. METFORMIN HCL [Concomitant]
  4. LISINOPRIL [Concomitant]
  5. FEMARA [Concomitant]
  6. PLAVIX [Concomitant]
  7. NIFEREX                            /01214501/ [Concomitant]
  8. ASPIRIN [Concomitant]
  9. PREDNISONE [Concomitant]
     Dates: end: 20080401
  10. PLAQUENIL [Concomitant]
  11. LIPITOR [Concomitant]

REACTIONS (2)
  - PRURITUS GENERALISED [None]
  - THROAT IRRITATION [None]
